FAERS Safety Report 7729199-6 (Version None)
Quarter: 2011Q3

REPORT INFORMATION
  Report Type: 
  Country: None (occurrence: None)
  Receive Date: 20110906
  Receipt Date: 20110831
  Transmission Date: 20111222
  Serious: No
  Sender: FDA-Public Use
  Company Number: US-PFIZER INC-2011203801

PATIENT
  Sex: Female

DRUGS (3)
  1. PRILOSEC [Concomitant]
     Dosage: UNK
  2. PRISTIQ [Suspect]
     Dosage: 50 MG, UNK
  3. MAALOX [Concomitant]
     Dosage: UNK

REACTIONS (4)
  - ABDOMINAL DISCOMFORT [None]
  - PRURITUS [None]
  - FLUSHING [None]
  - BURNING SENSATION [None]
